FAERS Safety Report 11746657 (Version 3)
Quarter: 2015Q4

REPORT INFORMATION
  Report Type: Spontaneous
  Country: US (occurrence: US)
  Receive Date: 20151117
  Receipt Date: 20151203
  Transmission Date: 20160304
  Serious: Yes (Life-Threatening, Hospitalization)
  Sender: FDA-Public Use
  Company Number: US-SA-2015SA183450

PATIENT
  Age: 8 Year
  Sex: Female

DRUGS (1)
  1. AUVI-Q [Suspect]
     Active Substance: EPINEPHRINE
     Indication: HYPERSENSITIVITY

REACTIONS (3)
  - Loss of consciousness [Recovered/Resolved]
  - Underdose [Unknown]
  - Rebound effect [Recovered/Resolved]

NARRATIVE: CASE EVENT DATE: 20151106
